FAERS Safety Report 9472665 (Version 5)
Quarter: 2014Q1

REPORT INFORMATION
  Report Type: Report from Study
  Country: US (occurrence: US)
  Receive Date: 20130823
  Receipt Date: 20140325
  Transmission Date: 20141002
  Serious: Yes (Other)
  Sender: FDA-Public Use
  Company Number: US-SANOFI-AVENTIS-2013SA083487

PATIENT
  Age: 62 Year
  Sex: Female
  Weight: 63 kg

DRUGS (12)
  1. AUBAGIO [Suspect]
     Indication: MULTIPLE SCLEROSIS
     Route: 048
     Dates: start: 20130803
  2. METFORMIN [Concomitant]
     Indication: DIABETES MELLITUS
     Route: 065
  3. OXYCODONE [Concomitant]
     Dosage: 6 TIMES PER DAY
  4. MORPHINE [Concomitant]
     Dosage: 1-2 TIMES DAILY
  5. LIDOCAINE [Concomitant]
     Dosage: PATCH
  6. GABAPENTIN [Concomitant]
  7. TIZANIDINE [Concomitant]
     Dosage: 6 TIMES A DAY
  8. CLONAZEPAM [Concomitant]
     Dosage: 2 MG 1 AND A HALF TABLET DAILY
  9. VITAMIN D [Concomitant]
  10. SUMATRIPTAN [Concomitant]
     Dosage: 100 MG AS NEEDED/2 DAY MAX
  11. METOPROLOL [Concomitant]
  12. GLIMEPIRIDE [Concomitant]
     Indication: DIABETES MELLITUS

REACTIONS (10)
  - Convulsion [Not Recovered/Not Resolved]
  - Abdominal discomfort [Not Recovered/Not Resolved]
  - Glycosylated haemoglobin increased [Not Recovered/Not Resolved]
  - Blood glucose increased [Not Recovered/Not Resolved]
  - Hypoaesthesia [Not Recovered/Not Resolved]
  - Depressed mood [Unknown]
  - Fall [Unknown]
  - Injection site reaction [Not Recovered/Not Resolved]
  - Musculoskeletal stiffness [Not Recovered/Not Resolved]
  - Weight decreased [Not Recovered/Not Resolved]
